FAERS Safety Report 5682783-6 (Version None)
Quarter: 2008Q1

REPORT INFORMATION
  Report Type: 
  Country: None (occurrence: None)
  Receive Date: 20080326
  Receipt Date: 20080326
  Transmission Date: 20080703
  Serious: Yes (Other)
  Sender: FDA-Public Use
  Company Number: None

PATIENT
  Age: 52 Year
  Sex: Female
  Weight: 68.0396 kg

DRUGS (1)
  1. CHANTIX [Suspect]
     Indication: SMOKING CESSATION THERAPY
     Dosage: 1- 0.5MGTAB THEN 1.0MG TAB Q DAY THEN BID PO
     Route: 048
     Dates: start: 20080117, end: 20080219

REACTIONS (23)
  - ABNORMAL DREAMS [None]
  - ANGER [None]
  - ANXIETY [None]
  - CONSTIPATION [None]
  - CRYING [None]
  - DEPRESSION [None]
  - DYSGEUSIA [None]
  - EMOTIONAL DISORDER [None]
  - EXAGGERATED STARTLE RESPONSE [None]
  - FAECES HARD [None]
  - FEELING ABNORMAL [None]
  - FLATULENCE [None]
  - FLIGHT OF IDEAS [None]
  - HEADACHE [None]
  - ILL-DEFINED DISORDER [None]
  - IRRITABILITY [None]
  - MENTAL STATUS CHANGES [None]
  - NAUSEA [None]
  - NEGATIVISM [None]
  - PARANOIA [None]
  - SLEEP DISORDER [None]
  - TEARFULNESS [None]
  - THINKING ABNORMAL [None]
